FAERS Safety Report 10205441 (Version 1)
Quarter: 2014Q2

REPORT INFORMATION
  Report Type: Spontaneous
  Country: US (occurrence: US)
  Receive Date: 20140529
  Receipt Date: 20140529
  Transmission Date: 20141212
  Serious: Yes (Other)
  Sender: FDA-Public Use
  Company Number: US-ALLERGAN-1410457US

PATIENT
  Age: 19 Year
  Sex: Female

DRUGS (3)
  1. ACZONE [Suspect]
     Indication: PRODUCT USED FOR UNKNOWN INDICATION
     Route: 061
  2. CITALOPRAM [Concomitant]
  3. ORAL CONTRACEPTIVE NOS [Concomitant]

REACTIONS (1)
  - Methaemoglobinaemia [Recovered/Resolved]
